FAERS Safety Report 6996937-X (Version None)
Quarter: 2010Q3

REPORT INFORMATION
  Report Type: 
  Country: None (occurrence: None)
  Receive Date: 20100918
  Receipt Date: 20090724
  Transmission Date: 20110219
  Serious: No
  Sender: FDA-Public Use
  Company Number: US-WYE-H10333409

PATIENT
  Sex: Female
  Weight: 63.56 kg

DRUGS (5)
  1. EFFEXOR XR [Suspect]
     Indication: DEPRESSION
     Route: 048
     Dates: end: 20090101
  2. EFFEXOR XR [Suspect]
     Dosage: TAPERING DOWN VERY SLOWLY FOR THE PAST FEW MONTHS
     Route: 048
     Dates: start: 20090101, end: 20090101
  3. EFFEXOR XR [Suspect]
     Route: 048
     Dates: start: 20090601
  4. AMBIEN [Concomitant]
  5. PROTONIX [Concomitant]

REACTIONS (2)
  - DRUG WITHDRAWAL SYNDROME [None]
  - MYALGIA [None]
